FAERS Safety Report 4335290-7 (Version None)
Quarter: 2004Q2

REPORT INFORMATION
  Report Type: 
  Country: None (occurrence: None)
  Receive Date: 20040408
  Receipt Date: 20040408
  Transmission Date: 20050107
  Serious: No
  Sender: FDA-Public Use
  Company Number: None

PATIENT
  Age: 81 Year
  Sex: Male
  Weight: 55.2 kg

DRUGS (1)
  1. IMIPEMEN [Suspect]
     Indication: UROSEPSIS
     Dosage: 500 MG, 500 MG QD, IV PIGGY
     Route: 042
     Dates: start: 20040215, end: 20040215

REACTIONS (1)
  - GRAND MAL CONVULSION [None]
